FAERS Safety Report 4695328-4 (Version None)
Quarter: 2005Q2

REPORT INFORMATION
  Report Type: 
  Country: None (occurrence: None)
  Receive Date: 20050120
  Receipt Date: 20050120
  Transmission Date: 20051028
  Serious: Yes (Other)
  Sender: FDA-Public Use
  Company Number: None

PATIENT
  Age: 11 Year
  Sex: Male

DRUGS (3)
  1. CLONIDINE [Suspect]
     Indication: ATTENTION DEFICIT/HYPERACTIVITY DISORDER
     Dates: start: 19980101
  2. CLONIDINE [Suspect]
     Indication: AUTISM SPECTRUM DISORDER
     Dates: start: 19980101
  3. CLONIDINE [Suspect]
     Indication: OPPOSITIONAL DEFIANT DISORDER
     Dates: start: 19980101

REACTIONS (3)
  - AGGRESSION [None]
  - PHARMACEUTICAL PRODUCT COMPLAINT [None]
  - SEDATION [None]
